FAERS Safety Report 7829938-X (Version None)
Quarter: 2011Q4

REPORT INFORMATION
  Report Type: 
  Country: None (occurrence: None)
  Receive Date: 20111021
  Receipt Date: 20110823
  Transmission Date: 20120403
  Serious: Yes (Life-Threatening)
  Sender: FDA-Public Use
  Company Number: US-BAYER-2011-080396

PATIENT
  Age: 64 Year
  Sex: Male

DRUGS (6)
  1. CLOPIDOGREL [Suspect]
     Indication: CORONARY ARTERIAL STENT INSERTION
     Route: 048
  2. ACETYLSALICYLIC ACID SRT [Suspect]
     Indication: CORONARY ARTERIAL STENT INSERTION
     Route: 048
  3. CLOPIDOGREL [Suspect]
     Indication: MYOCARDIAL INFARCTION
  4. CLOPIDOGREL [Suspect]
     Indication: ANTICOAGULANT THERAPY
  5. ACETYLSALICYLIC ACID SRT [Suspect]
  6. ACETYLSALICYLIC ACID SRT [Suspect]
     Indication: ANTICOAGULANT THERAPY

REACTIONS (1)
  - ACUTE MYOCARDIAL INFARCTION [None]
